FAERS Safety Report 21035529 (Version 1)
Quarter: 2022Q3

REPORT INFORMATION
  Report Type: Spontaneous
  Country: CN (occurrence: CN)
  Receive Date: 20220701
  Receipt Date: 20220701
  Transmission Date: 20221027
  Serious: Yes (Hospitalization, Other)
  Sender: FDA-Public Use
  Company Number: None

PATIENT
  Age: 67 Year
  Sex: Male
  Weight: 58 kg

DRUGS (7)
  1. OPDIVO [Suspect]
     Active Substance: NIVOLUMAB
     Indication: Squamous cell carcinoma
     Dosage: 0.2G + 0.9% SODIUM CHLORIDE INJECTION 100ML IV DRIP ONCE
     Route: 041
     Dates: start: 20220525, end: 20220525
  2. DOCETAXEL [Suspect]
     Active Substance: DOCETAXEL
     Indication: Squamous cell carcinoma
     Dosage: 20MG 1 + 0.9% SODIUM CHLORIDE INJECTION 100ML IV DRIP ONCE
     Route: 042
     Dates: start: 20220525, end: 20220525
  3. DOCETAXEL [Suspect]
     Active Substance: DOCETAXEL
     Dosage: 100MG D1 + 0.9% SODIUM CHLORIDE INJECTION 500ML IV DRIP ONCE,
     Route: 042
  4. CISPLATIN [Suspect]
     Active Substance: CISPLATIN
     Indication: Squamous cell carcinoma
     Dosage: 40MG + 0.9% SODIUM CHLORIDE INJECTION 500ML IV DRIP QD D1-3,
     Route: 042
     Dates: start: 20220525, end: 20220527
  5. SODIUM CHLORIDE [Concomitant]
     Active Substance: SODIUM CHLORIDE
     Indication: Squamous cell carcinoma
     Dosage: DOCETAXEL INJECTION 20MG 1 + 0.9% SODIUM CHLORIDE INJECTION 100ML IV DRIP?ONCE
     Route: 041
     Dates: start: 20220525, end: 20220525
  6. SODIUM CHLORIDE [Concomitant]
     Active Substance: SODIUM CHLORIDE
     Dosage: DOCETAXEL INJECTION 100MG D1 + 0.9% SODIUM CHLORIDE INJECTION 500ML IV DRIP ONCE
     Route: 041
     Dates: start: 20220525, end: 20220525
  7. SODIUM CHLORIDE [Concomitant]
     Active Substance: SODIUM CHLORIDE
     Dosage: 0.2G + 0.9% SODIUM CHLORIDE INJECTION 100ML IV DRIP ONCE
     Route: 041
     Dates: start: 20220525, end: 20220525

REACTIONS (3)
  - Myelosuppression [Recovering/Resolving]
  - Pyrexia [Recovering/Resolving]
  - Intentional product use issue [Unknown]

NARRATIVE: CASE EVENT DATE: 20220531
